FAERS Safety Report 7407065-3 (Version None)
Quarter: 2011Q2

REPORT INFORMATION
  Report Type: 
  Country: None (occurrence: None)
  Receive Date: 20110411
  Receipt Date: 20110405
  Transmission Date: 20111010
  Serious: Yes (Hospitalization)
  Sender: FDA-Public Use
  Company Number: AT-ROCHE-769297

PATIENT
  Sex: Male
  Weight: 85 kg

DRUGS (6)
  1. SYMBICORT FORTE [Concomitant]
     Dosage: ROUTE: INHALATIVE
     Route: 055
     Dates: start: 20090922
  2. AVASTIN [Suspect]
     Route: 042
     Dates: start: 20100224, end: 20100409
  3. UROSIN [Concomitant]
     Indication: HYPERURICAEMIA
     Route: 048
  4. SPIRIVA [Concomitant]
     Dosage: ROUTE: INHALATIVE
     Route: 055
     Dates: start: 20090922
  5. TAXOTERE [Concomitant]
     Route: 042
     Dates: start: 20100224, end: 20100409
  6. PANTOPRAZOLE SODIUM [Concomitant]
     Indication: GASTRITIS
     Route: 048
     Dates: start: 20100825

REACTIONS (1)
  - PNEUMOTHORAX [None]
